FAERS Safety Report 4295947-3 (Version None)
Quarter: 2004Q1

REPORT INFORMATION
  Report Type: 
  Country: None (occurrence: None)
  Receive Date: 20040211
  Receipt Date: 20040121
  Transmission Date: 20041129
  Serious: No
  Sender: FDA-Public Use
  Company Number: A02200400231

PATIENT
  Age: 38 Year
  Sex: Female

DRUGS (2)
  1. PLAQUENIL [Suspect]
     Indication: SYSTEMIC LUPUS ERYTHEMATOSUS
     Dosage: 400 MG QD
     Route: 048
     Dates: start: 20000101
  2. TOLEXINE (DOXYCYCLINE) [Concomitant]

REACTIONS (1)
  - MELANOSIS COLI [None]
